FAERS Safety Report 8887362 (Version 4)
Quarter: 2012Q4

REPORT INFORMATION
  Report Type: Report from Study
  Country: US (occurrence: US)
  Receive Date: 20121105
  Receipt Date: 20121203
  Transmission Date: 20130627
  Serious: Yes (Hospitalization)
  Sender: FDA-Public Use
  Company Number: US-GILEAD-2012-0064063

PATIENT
  Age: 23 Year
  Sex: Male

DRUGS (8)
  1. EMTRICITABINE/TENOFOVIR DISOPROXIL FUMARATE [Suspect]
     Indication: HIV INFECTION
     Dosage: 1 DF, QD
     Route: 048
     Dates: start: 20100702, end: 20121002
  2. DARUNAVIR [Suspect]
     Indication: HIV INFECTION
     Dosage: 800 mg, QD
     Route: 048
     Dates: start: 20100702, end: 20121002
  3. RITONAVIR [Suspect]
     Indication: HIV INFECTION
     Dosage: 100 mg, QD
     Route: 048
     Dates: start: 20100702, end: 20121002
  4. IBUPROFEN [Concomitant]
  5. ACETAMINOPHEN [Concomitant]
     Dosage: 2 DF, Q4Hr
  6. KETOCONAZOLE [Concomitant]
     Dosage: 2 %, BID
  7. TYLENOL /00020001/ [Concomitant]
  8. PERCOCET                           /00446701/ [Concomitant]

REACTIONS (1)
  - Osteonecrosis [Recovering/Resolving]
